FAERS Safety Report 11282715 (Version 1)
Quarter: 2015Q3

REPORT INFORMATION
  Report Type: Spontaneous
  Country: US (occurrence: None)
  Receive Date: 20150717
  Receipt Date: 20150717
  Transmission Date: 20151125
  Serious: Yes (Death)
  Sender: FDA-Public Use
  Company Number: None

PATIENT
  Age: 77 Year
  Sex: Male

DRUGS (24)
  1. SALINE FLUSH [Concomitant]
     Active Substance: SODIUM CHLORIDE
  2. ZOLPIDEM [Concomitant]
     Active Substance: ZOLPIDEM\ZOLPIDEM TARTRATE
  3. ARTIFICIAL SOL TEARS [Concomitant]
  4. SODIUM CHLOR [Concomitant]
  5. LEVOFLOXACIN. [Concomitant]
     Active Substance: LEVOFLOXACIN
  6. FENTANYL DIS [Concomitant]
  7. FENTANYL. [Concomitant]
     Active Substance: FENTANYL
  8. TAMSULOSIN [Concomitant]
     Active Substance: TAMSULOSIN
  9. CRESTOR [Concomitant]
     Active Substance: ROSUVASTATIN CALCIUM
  10. FENTANYL DIS [Concomitant]
  11. ZOLPIDEM [Concomitant]
     Active Substance: ZOLPIDEM\ZOLPIDEM TARTRATE
  12. DEXAMETHASON CON [Concomitant]
  13. FAMOTIDINE SUS [Concomitant]
  14. ACYCLOVIR. [Concomitant]
     Active Substance: ACYCLOVIR
  15. LORAZEPAM CON [Concomitant]
  16. ENOXAPARIN [Concomitant]
     Active Substance: ENOXAPARIN
  17. GABAPENTIN. [Concomitant]
     Active Substance: GABAPENTIN
  18. SOD ACETATE [Concomitant]
  19. GENERLAC SOL [Concomitant]
  20. NEUPOGEN [Suspect]
     Active Substance: FILGRASTIM
     Indication: LYMPHOMA
     Dosage: 10 DAYS
     Route: 058
     Dates: start: 20150618, end: 20150711
  21. ACYCLOVIR. [Concomitant]
     Active Substance: ACYCLOVIR
  22. ACYCLOVIR. [Concomitant]
     Active Substance: ACYCLOVIR
  23. FLUCONAZOLE. [Concomitant]
     Active Substance: FLUCONAZOLE
  24. HYDROMORPHONE [Concomitant]
     Active Substance: HYDROMORPHONE

REACTIONS (1)
  - Death [None]

NARRATIVE: CASE EVENT DATE: 20150711
